FAERS Safety Report 15871286 (Version 2)
Quarter: 2019Q1

REPORT INFORMATION
  Report Type: Spontaneous
  Country: US (occurrence: US)
  Receive Date: 20190126
  Receipt Date: 20190222
  Transmission Date: 20190417
  Serious: No
  Sender: FDA-Public Use
  Company Number: US-JNJFOC-20190100330

PATIENT
  Sex: Male

DRUGS (3)
  1. XELODA [Concomitant]
     Active Substance: CAPECITABINE
     Indication: CONSTIPATION
     Dosage: 3 DAYS.
     Route: 065
  2. IMODIUM MULTI-SYMPTOM RELIEF [Suspect]
     Active Substance: DIMETHICONE\LOPERAMIDE HYDROCHLORIDE
     Route: 048
  3. IMODIUM MULTI-SYMPTOM RELIEF [Suspect]
     Active Substance: DIMETHICONE\LOPERAMIDE HYDROCHLORIDE
     Indication: DIARRHOEA
     Dosage: 1 AND HALF CAPLET WHEN NEEDED
     Route: 048
     Dates: end: 20181224

REACTIONS (2)
  - Incorrect dose administered [Unknown]
  - Product use complaint [Unknown]
